FAERS Safety Report 21818627 (Version 2)
Quarter: 2023Q1

REPORT INFORMATION
  Report Type: Spontaneous
  Country: US (occurrence: US)
  Receive Date: 20230104
  Receipt Date: 20230112
  Transmission Date: 20230418
  Serious: Yes (Other)
  Sender: FDA-Public Use
  Company Number: US-INTERCEPT-PM2022002061

PATIENT
  Sex: Female

DRUGS (3)
  1. OCALIVA [Suspect]
     Active Substance: OBETICHOLIC ACID
     Indication: Primary biliary cholangitis
     Dosage: 5 MILLIGRAM, QD
     Route: 048
  2. OCALIVA [Suspect]
     Active Substance: OBETICHOLIC ACID
     Dosage: 5 MILLIGRAM, QW
     Route: 048
     Dates: start: 20201210, end: 20210301
  3. URSODIOL [Concomitant]
     Active Substance: URSODIOL

REACTIONS (4)
  - Hepatic failure [Unknown]
  - Liver transplant [Recovered/Resolved]
  - Mobility decreased [Unknown]
  - Swelling [Unknown]

NARRATIVE: CASE EVENT DATE: 20210101
